FAERS Safety Report 7243385-3 (Version None)
Quarter: 2011Q1

REPORT INFORMATION
  Report Type: 
  Country: None (occurrence: None)
  Receive Date: 20110125
  Receipt Date: 20110112
  Transmission Date: 20110831
  Serious: Yes (Death, Other)
  Sender: FDA-Public Use
  Company Number: CA-ELI_LILLY_AND_COMPANY-CA201007003253

PATIENT
  Age: 60 Year
  Sex: Male
  Weight: 129 kg

DRUGS (12)
  1. ADCIRCA [Suspect]
     Indication: PULMONARY HYPERTENSION
     Dosage: 40 MG, DAILY (1/D)
     Route: 048
     Dates: start: 20100403, end: 20100706
  2. BOSENTAN [Concomitant]
     Dosage: 125 MG, 2/D
     Route: 048
  3. ALLOPURINOL [Concomitant]
     Dosage: 200 MG, DAILY (1/D)
     Route: 048
  4. CRESTOR [Concomitant]
     Dosage: 40 MG, EACH EVENING
  5. ZAROXOLYN [Concomitant]
     Dosage: 10 MG, DAILY (1/D)
     Route: 048
  6. INSULIN [Concomitant]
  7. ALDACTAZIDE [Concomitant]
     Dosage: 1 D/F, DAILY (1/D)
     Route: 048
  8. ACETYLSALICYLIC ACID [Concomitant]
     Dosage: 81 MG, DAILY (1/D)
     Route: 048
  9. LASIX [Concomitant]
     Dosage: 160 MG, 2/D
     Route: 048
  10. K-DUR [Concomitant]
     Dosage: 40 MEQ, 4/D
  11. ATROVENT [Concomitant]
     Dosage: 2 D/F, 4/D
     Route: 055
  12. PRILOSEC [Concomitant]
     Dosage: 40 MG, DAILY (1/D)
     Route: 048

REACTIONS (3)
  - DRUG INEFFECTIVE [None]
  - RENAL FAILURE CHRONIC [None]
  - PULMONARY ARTERIAL HYPERTENSION [None]
